FAERS Safety Report 23673768 (Version 2)
Quarter: 2024Q2

REPORT INFORMATION
  Report Type: Report from Study
  Country: JP (occurrence: JP)
  Receive Date: 20240326
  Receipt Date: 20240405
  Transmission Date: 20240715
  Serious: Yes (Hospitalization)
  Sender: FDA-Public Use
  Company Number: JP-RADIUS HEALTH, INC.-2024JP001476

PATIENT
  Age: 68 Year
  Sex: Female

DRUGS (1)
  1. ABALOPARATIDE [Suspect]
     Active Substance: ABALOPARATIDE
     Indication: Product used for unknown indication
     Dosage: 80 MICROGRAM, QD
     Route: 058
     Dates: start: 20240130, end: 2024

REACTIONS (5)
  - Abdominal pain [Unknown]
  - Injection site bruising [Unknown]
  - Injection site urticaria [Unknown]
  - Nausea [Unknown]
  - Collagen disorder [Unknown]

NARRATIVE: CASE EVENT DATE: 20240101
